FAERS Safety Report 7548104 (Version 12)
Quarter: 2012Q4

REPORT INFORMATION
  Report Type: 
  Country: SE (occurrence: SE)
  Receive Date: 20100820
  Receipt Date: 20121030
  Transmission Date: 20130627
  Serious: Yes (Other)
  Sender: FDA-Public Use
  Company Number: SE-PFIZER INC-2009221840

PATIENT
  Age: 43 Year
  Sex: Male

DRUGS (13)
  1. ZOLOFT [Suspect]
     Indication: ANXIETY
     Dosage: 50 mg daily
     Route: 048
     Dates: start: 1997
  2. ZOLOFT [Suspect]
     Dosage: 75 mg daily
     Route: 048
  3. ZOLOFT [Suspect]
     Dosage: 50 mg daily
     Route: 048
  4. ZOLOFT [Suspect]
     Dosage: 75 mg daily
     Route: 048
  5. ZOLOFT [Suspect]
     Dosage: 25 mg, UNK
     Route: 048
  6. ZOLOFT [Suspect]
     Dosage: 50 mg, UNK
     Route: 048
  7. ZOLOFT [Suspect]
     Dosage: 75 mg, UNK
  8. THERALEN [Concomitant]
     Dosage: Taken before night
     Dates: start: 1997
  9. RENNIE [Concomitant]
     Dosage: UNK
  10. LINK [Concomitant]
     Dosage: UNK
  11. STESOLID [Concomitant]
     Indication: ANXIETY
     Dosage: 2.5-5 mg twice weekly
  12. LANZO [Concomitant]
     Dosage: UNK
  13. PROPAVAN [Concomitant]
     Dosage: UNK

REACTIONS (37)
  - Convulsion [Unknown]
  - White blood cell count decreased [Not Recovered/Not Resolved]
  - Drug withdrawal syndrome [Not Recovered/Not Resolved]
  - Depressed mood [Unknown]
  - Reading disorder [Not Recovered/Not Resolved]
  - Speech disorder [Not Recovered/Not Resolved]
  - Dizziness [Not Recovered/Not Resolved]
  - Chest pain [Not Recovered/Not Resolved]
  - Stress fracture [Unknown]
  - Migraine [Not Recovered/Not Resolved]
  - Vitamin D decreased [Not Recovered/Not Resolved]
  - Toothache [Not Recovered/Not Resolved]
  - Joint stiffness [Not Recovered/Not Resolved]
  - Nausea [Not Recovered/Not Resolved]
  - Dyspepsia [Not Recovered/Not Resolved]
  - Vomiting [Not Recovered/Not Resolved]
  - Sexual dysfunction [Not Recovered/Not Resolved]
  - Sweat gland disorder [Unknown]
  - Tooth extraction [Not Recovered/Not Resolved]
  - Decreased appetite [Unknown]
  - Ear pain [Not Recovered/Not Resolved]
  - Hot flush [Not Recovered/Not Resolved]
  - Contusion [Not Recovered/Not Resolved]
  - Laceration [Not Recovered/Not Resolved]
  - Pain in extremity [Not Recovered/Not Resolved]
  - Tinnitus [Not Recovered/Not Resolved]
  - Abdominal pain [Unknown]
  - Eye pain [Unknown]
  - Vision blurred [Unknown]
  - Visual impairment [Recovered/Resolved]
  - Malaise [Not Recovered/Not Resolved]
  - Nocturia [Not Recovered/Not Resolved]
  - Ear congestion [Not Recovered/Not Resolved]
  - Cough [Not Recovered/Not Resolved]
  - Throat irritation [Not Recovered/Not Resolved]
  - Muscle twitching [Not Recovered/Not Resolved]
  - Skin burning sensation [Not Recovered/Not Resolved]
